FAERS Safety Report 4410525-0 (Version None)
Quarter: 2004Q3

REPORT INFORMATION
  Report Type: 
  Country: None (occurrence: None)
  Receive Date: 20040726
  Receipt Date: 20040713
  Transmission Date: 20050211
  Serious: Yes (Hospitalization)
  Sender: FDA-Public Use
  Company Number: 2004045888

PATIENT
  Age: 63 Year
  Sex: Female

DRUGS (2)
  1. ZITHROMAX [Suspect]
     Indication: PARONYCHIA
     Dosage: 500 MG (1 IN 1 D), ORAL
     Route: 048
     Dates: start: 20040614, end: 20040615
  2. UREA (UREA) [Concomitant]

REACTIONS (1)
  - FACIAL PALSY [None]
